FAERS Safety Report 10826091 (Version 1)
Quarter: 2015Q1

REPORT INFORMATION
  Report Type: Report from Study
  Country: US (occurrence: US)
  Receive Date: 20150219
  Receipt Date: 20150219
  Transmission Date: 20150721
  Serious: No
  Sender: FDA-Public Use
  Company Number: US-ABBVIE-14K-163-1316223-00

PATIENT
  Age: 50 Year
  Sex: Female

DRUGS (1)
  1. HUMIRA [Suspect]
     Active Substance: ADALIMUMAB
     Indication: PSORIATIC ARTHROPATHY
     Route: 065

REACTIONS (21)
  - Hyperacusis [Unknown]
  - Photophobia [Unknown]
  - Pyrexia [Recovering/Resolving]
  - Delirium [Recovering/Resolving]
  - Drug ineffective [Unknown]
  - Incoherent [Recovering/Resolving]
  - Meningitis viral [Unknown]
  - Mobility decreased [Unknown]
  - Skin haemorrhage [Not Recovered/Not Resolved]
  - Pain of skin [Not Recovered/Not Resolved]
  - Blister [Not Recovered/Not Resolved]
  - Infection [Unknown]
  - Headache [Unknown]
  - Psoriatic arthropathy [Unknown]
  - Confusional state [Unknown]
  - Sensory disturbance [Unknown]
  - Pyrexia [Unknown]
  - Psoriasis [Unknown]
  - Fatigue [Unknown]
  - Neck pain [Unknown]
  - Musculoskeletal stiffness [Not Recovered/Not Resolved]

NARRATIVE: CASE EVENT DATE: 201408
